FAERS Safety Report 6491339-7 (Version None)
Quarter: 2009Q4

REPORT INFORMATION
  Report Type: 
  Country: None (occurrence: None)
  Receive Date: 20091207
  Receipt Date: 20091123
  Transmission Date: 20100525
  Serious: Yes (Hospitalization)
  Sender: FDA-Public Use
  Company Number: THQ2009A05082

PATIENT
  Age: 70 Year
  Sex: Female

DRUGS (2)
  1. ACTOS [Suspect]
     Indication: DIABETES MELLITUS
     Dosage: 15 MG, PER ORAL
     Route: 048
     Dates: start: 20080601, end: 20090401
  2. SITAGLIPTIN (ANTI-DIABETICS) [Concomitant]

REACTIONS (2)
  - CARDIAC FAILURE CHRONIC [None]
  - RESPIRATORY TRACT INFECTION [None]
